FAERS Safety Report 16021272 (Version 2)
Quarter: 2019Q2

REPORT INFORMATION
  Report Type: Spontaneous
  Country: CA (occurrence: CA)
  Receive Date: 20190301
  Receipt Date: 20190625
  Transmission Date: 20190711
  Serious: Yes (Other)
  Sender: FDA-Public Use
  Company Number: CA-AUROBINDO-AUR-APL-2019-010025

PATIENT

DRUGS (4)
  1. SERAX [Concomitant]
     Active Substance: OXAZEPAM
     Indication: PRODUCT USED FOR UNKNOWN INDICATION
     Dosage: 45 MILLIGRAM, ONCE A DAY
     Route: 065
  2. ESCITALOPRAM TEVA [Suspect]
     Active Substance: ESCITALOPRAM OXALATE
     Indication: PRODUCT USED FOR UNKNOWN INDICATION
     Dosage: 20 MILLIGRAM, ONCE A DAY
     Route: 065
  3. ESCITALOPRAM [Suspect]
     Active Substance: ESCITALOPRAM OXALATE
     Indication: PRODUCT USED FOR UNKNOWN INDICATION
     Dosage: 20 MILLIGRAM, ONCE A DAY
     Route: 065
  4. ABILIFY [Suspect]
     Active Substance: ARIPIPRAZOLE
     Indication: DEPRESSION
     Dosage: 2 MILLIGRAM
     Route: 048

REACTIONS (7)
  - Agitation [Recovered/Resolved]
  - Energy increased [Recovered/Resolved]
  - Impulsive behaviour [Recovered/Resolved]
  - Hypomania [Recovered/Resolved]
  - Euphoric mood [Recovered/Resolved]
  - Restlessness [Recovered/Resolved]
  - Insomnia [Recovered/Resolved]
